FAERS Safety Report 7956399-2 (Version None)
Quarter: 2011Q4

REPORT INFORMATION
  Report Type: 
  Country: None (occurrence: None)
  Receive Date: 20111205
  Receipt Date: 20111202
  Transmission Date: 20120403
  Serious: Yes (Other)
  Sender: FDA-Public Use
  Company Number: GB-PFIZER INC-2011285592

PATIENT
  Age: 31 Year
  Sex: Female

DRUGS (1)
  1. VARENICLINE TARTRATE [Suspect]
     Indication: SMOKING CESSATION THERAPY
     Dosage: UNK
     Route: 048
     Dates: start: 20111103, end: 20111112

REACTIONS (5)
  - PHYSICAL ABUSE [None]
  - VERBAL ABUSE [None]
  - THINKING ABNORMAL [None]
  - AGGRESSION [None]
  - PSYCHOTIC DISORDER [None]
